FAERS Safety Report 20714562 (Version 2)
Quarter: 2022Q2

REPORT INFORMATION
  Report Type: Report from Study
  Country: FR (occurrence: FR)
  Receive Date: 20220415
  Receipt Date: 20220506
  Transmission Date: 20220721
  Serious: Yes (Other)
  Sender: FDA-Public Use
  Company Number: FR-BRISTOL-MYERS SQUIBB COMPANY-2022-017821

PATIENT
  Age: 51 Year
  Sex: Male

DRUGS (4)
  1. AZACITIDINE [Suspect]
     Active Substance: AZACITIDINE
     Indication: Acute myeloid leukaemia
     Dosage: 300 MG PER DAY FOR 14 DAY (28 DAYS TREATMENT CYCLE) .THEN, 200 MG PER DAY FOR 14 DAY (28 DAYS TREATM
     Route: 065
     Dates: start: 20211012, end: 20211122
  2. AZACITIDINE [Suspect]
     Active Substance: AZACITIDINE
     Dosage: FOR 14 DAYS
     Dates: end: 202112
  3. PRIMPERAN [Concomitant]
     Active Substance: METOCLOPRAMIDE HYDROCHLORIDE
     Indication: Vomiting
     Route: 065
  4. RACECADOTRIL [Concomitant]
     Active Substance: RACECADOTRIL
     Indication: Diarrhoea
     Route: 065

REACTIONS (4)
  - Nausea [Unknown]
  - Vomiting [Unknown]
  - Diarrhoea [Unknown]
  - Platelet disorder [Unknown]

NARRATIVE: CASE EVENT DATE: 20211201
